FAERS Safety Report 19268869 (Version 1)
Quarter: 2021Q2

REPORT INFORMATION
  Report Type: Spontaneous
  Country: US (occurrence: US)
  Receive Date: 20210517
  Receipt Date: 20210517
  Transmission Date: 20210717
  Serious: No
  Sender: FDA-Public Use
  Company Number: US-BEH-2021131150

PATIENT
  Sex: Female

DRUGS (2)
  1. HIZENTRA [Suspect]
     Active Substance: HUMAN IMMUNOGLOBULIN G
     Dosage: 4 GRAM, QW
     Route: 058
     Dates: start: 20210316
  2. HIZENTRA [Suspect]
     Active Substance: HUMAN IMMUNOGLOBULIN G
     Indication: NEUROPATHY PERIPHERAL
     Dosage: 10 GRAM, QW
     Route: 058
     Dates: start: 20210316

REACTIONS (6)
  - Off label use [Unknown]
  - Injection site bruising [Unknown]
  - Recalled product administered [Unknown]
  - Erythema [Unknown]
  - Unevaluable event [Unknown]
  - No adverse event [Unknown]
